FAERS Safety Report 18843211 (Version 1)
Quarter: 2021Q1

REPORT INFORMATION
  Report Type: Other
  Country: HU (occurrence: HU)
  Receive Date: 20210204
  Receipt Date: 20210204
  Transmission Date: 20210419
  Serious: Yes (Other)
  Sender: FDA-Public Use
  Company Number: HU-ROCHE-2757979

PATIENT
  Sex: Male

DRUGS (12)
  1. RITUXIMAB. [Suspect]
     Active Substance: RITUXIMAB
     Indication: DIFFUSE LARGE B-CELL LYMPHOMA
     Dosage: 6 CYCLES
     Route: 041
  2. VENETOCLAX. [Suspect]
     Active Substance: VENETOCLAX
     Indication: DIFFUSE LARGE B-CELL LYMPHOMA
     Dosage: 2ND?6TH CYCLE (6 CYCLES EVERY 28 DAYS, RITUXIMAB?BENDAMUSTINE?VENETOCLAX INDUCTION THERAPY)
     Route: 065
  3. BENDAMUSTINE [Suspect]
     Active Substance: BENDAMUSTINE
     Indication: DIFFUSE LARGE B-CELL LYMPHOMA
     Route: 065
  4. BEAM [Suspect]
     Active Substance: SODIUM FLUORIDE
     Indication: PRODUCT USED FOR UNKNOWN INDICATION
     Dosage: UNK, (AS R?BEAM)
     Route: 065
  5. RITUXIMAB. [Suspect]
     Active Substance: RITUXIMAB
     Dosage: UNK, AS R?BEAM
     Route: 041
  6. CHOP [Suspect]
     Active Substance: CYCLOPHOSPHAMIDE\DOXORUBICIN\PREDNISONE\VINCRISTINE
     Indication: DIFFUSE LARGE B-CELL LYMPHOMA
     Dosage: UNK, (AS RCHOP21) FOR 6 CYCLES
     Route: 065
  7. RITUXIMAB. [Suspect]
     Active Substance: RITUXIMAB
     Indication: DIFFUSE LARGE B-CELL LYMPHOMA
     Route: 041
  8. RITUXIMAB. [Suspect]
     Active Substance: RITUXIMAB
     Dosage: UNK, AS RCHOP21 FOR 6 CYCLES
     Route: 041
  9. RITUXIMAB. [Suspect]
     Active Substance: RITUXIMAB
     Dosage: 375 MG/M2 FOR A TOTAL OF 6 CYCLES EVERY 28 DAYS (RITUXIMAB?BENDAMUSTINE?VENETOCLAX INDUCTION THERAPY
     Route: 041
  10. DHAP [Suspect]
     Active Substance: CISPLATIN\CYTARABINE\DEXAMETHASONE
     Indication: DIFFUSE LARGE B-CELL LYMPHOMA
     Dosage: (AS R?DHAP)
     Route: 065
  11. VENETOCLAX. [Suspect]
     Active Substance: VENETOCLAX
     Dosage: MAINTENANCE THERAPY
     Route: 065
  12. VENETOCLAX. [Suspect]
     Active Substance: VENETOCLAX
     Dosage: 50 MG TO 400 MG IN THE FIRST CYCLE (6 CYCLES EVERY 28 DAYS, RITUXIMAB?BENDAMUSTINE?VENETOCLAX INDUCT
     Route: 065

REACTIONS (12)
  - Infection [Unknown]
  - Pneumonia [Recovering/Resolving]
  - Autologous haematopoietic stem cell transplant [Unknown]
  - Candida infection [Recovering/Resolving]
  - Febrile neutropenia [Recovered/Resolved]
  - Diffuse large B-cell lymphoma recurrent [Recovered/Resolved]
  - Febrile neutropenia [Unknown]
  - Neutropenia [Unknown]
  - Respiratory failure [Recovering/Resolving]
  - General physical health deterioration [Recovering/Resolving]
  - Myelosuppression [Unknown]
  - Drug resistance [Unknown]

NARRATIVE: CASE EVENT DATE: 201701
